FAERS Safety Report 9204272 (Version 1)
Quarter: 2013Q2

REPORT INFORMATION
  Report Type: Spontaneous
  Country: US (occurrence: None)
  Receive Date: 20130401
  Receipt Date: 20130401
  Transmission Date: 20140414
  Serious: No
  Sender: FDA-Public Use
  Company Number: None

PATIENT
  Age: 67 Year
  Sex: Female
  Weight: 61.24 kg

DRUGS (1)
  1. CREST PRO-HEALTH [Suspect]
     Dosage: 4 TEAS.
     Dates: start: 20130108, end: 20130329

REACTIONS (1)
  - Tooth discolouration [None]
